FAERS Safety Report 9790546 (Version 3)
Quarter: 2014Q1

REPORT INFORMATION
  Report Type: Spontaneous
  Country: US (occurrence: US)
  Receive Date: 20131231
  Receipt Date: 20140228
  Transmission Date: 20141002
  Serious: Yes (Other)
  Sender: FDA-Public Use
  Company Number: US-PFIZER INC-2013371758

PATIENT
  Sex: Male

DRUGS (3)
  1. GABAPENTIN [Suspect]
     Dosage: UNK
  2. ALEVE [Suspect]
     Dosage: ONE TABLET PER WEEK
  3. TYLENOL [Suspect]
     Dosage: UNK

REACTIONS (3)
  - Ulcer haemorrhage [Unknown]
  - Dreamy state [Unknown]
  - Impaired driving ability [Unknown]
